FAERS Safety Report 8573686-8 (Version None)
Quarter: 2012Q3

REPORT INFORMATION
  Report Type: 
  Country: None (occurrence: None)
  Receive Date: 20120806
  Receipt Date: 20120730
  Transmission Date: 20120928
  Serious: Yes (Hospitalization)
  Sender: FDA-Public Use
  Company Number: US-GLAXOSMITHKLINE-A0936942A

PATIENT
  Age: 71 Year
  Sex: Male

DRUGS (1)
  1. AVANDIA [Suspect]
     Indication: DIABETES MELLITUS
     Route: 048
     Dates: start: 20050703

REACTIONS (4)
  - ARTERIOSCLEROSIS [None]
  - MYOCARDIAL INFARCTION [None]
  - TACHYCARDIA [None]
  - ARRHYTHMIA SUPRAVENTRICULAR [None]
